FAERS Safety Report 4308649-1 (Version None)
Quarter: 2004Q1

REPORT INFORMATION
  Report Type: 
  Country: None (occurrence: None)
  Receive Date: 20040227
  Receipt Date: 20040211
  Transmission Date: 20041129
  Serious: Yes (Other)
  Sender: FDA-Public Use
  Company Number: A0497631A

PATIENT
  Age: 56 Year
  Sex: Male

DRUGS (5)
  1. NICORETTE [Suspect]
     Dosage: 2 MG/ TRANSBUCAL
     Dates: start: 20031101
  2. METHOTREXATE [Concomitant]
  3. NAPROXEN [Concomitant]
  4. HYDROXYCHLOROQUINE SO4 [Concomitant]
  5. ETANERCEPT [Concomitant]

REACTIONS (2)
  - DEPENDENCE [None]
  - INITIAL INSOMNIA [None]
